FAERS Safety Report 12473705 (Version 1)
Quarter: 2016Q2

REPORT INFORMATION
  Report Type: Spontaneous
  Country: US (occurrence: US)
  Receive Date: 20160616
  Receipt Date: 20160616
  Transmission Date: 20160815
  Serious: No
  Sender: FDA-Public Use
  Company Number: US-TARO-2016TAR00260

PATIENT
  Age: 6 Year
  Sex: Male
  Weight: 19.96 kg

DRUGS (3)
  1. AMOXICILLIN. [Concomitant]
     Active Substance: AMOXICILLIN
     Dosage: 2 TSP, 2X/DAY
     Dates: start: 20160317
  2. MOTRIN [Concomitant]
     Active Substance: IBUPROFEN
     Dosage: UNK, ONCE
     Dates: start: 20160317, end: 20160317
  3. CETIRIZINE HCL [Suspect]
     Active Substance: CETIRIZINE HYDROCHLORIDE
     Indication: MULTIPLE ALLERGIES
     Dosage: 5 ML, 1X/DAY
     Route: 048
     Dates: start: 20160317

REACTIONS (1)
  - Abnormal behaviour [Not Recovered/Not Resolved]

NARRATIVE: CASE EVENT DATE: 20160317
